FAERS Safety Report 7103312-6 (Version None)
Quarter: 2010Q4

REPORT INFORMATION
  Report Type: 
  Country: None (occurrence: None)
  Receive Date: 20101115
  Receipt Date: 20090415
  Transmission Date: 20110411
  Serious: Yes (Life-Threatening, Hospitalization, Other)
  Sender: FDA-Public Use
  Company Number: PHHY2009NO14191

PATIENT
  Sex: Female

DRUGS (3)
  1. VALSARTAN  AND HYDROCHLOROTHIAZIDE [Suspect]
     Indication: HYPERTENSION
     Dosage: 80/12.5 MG
     Route: 065
  2. METFORMIN HCL [Suspect]
     Indication: TYPE 2 DIABETES MELLITUS
     Dosage: 500 MG, TID
     Route: 048
  3. AMARYL [Concomitant]
     Route: 065

REACTIONS (17)
  - BLOOD OSMOLARITY ABNORMAL [None]
  - BRAIN STEM SYNDROME [None]
  - DEHYDRATION [None]
  - DEPENDENCE ON RESPIRATOR [None]
  - DEPRESSED LEVEL OF CONSCIOUSNESS [None]
  - DIARRHOEA [None]
  - DYSPHAGIA [None]
  - GAIT DISTURBANCE [None]
  - GASTROENTERITIS [None]
  - HYPOGLYCAEMIA [None]
  - HYPOPHAGIA [None]
  - LACTIC ACIDOSIS [None]
  - NUTRITIONAL CONDITION ABNORMAL [None]
  - PNEUMONIA ASPIRATION [None]
  - RENAL FAILURE [None]
  - TROPONIN T INCREASED [None]
  - VOMITING [None]
